FAERS Safety Report 4717154-X (Version None)
Quarter: 2005Q3

REPORT INFORMATION
  Report Type: 
  Country: None (occurrence: None)
  Receive Date: 20050719
  Receipt Date: 20050712
  Transmission Date: 20060218
  Serious: Yes (Life-Threatening)
  Sender: FDA-Public Use
  Company Number: GB-GLAXOSMITHKLINE-B0387500A

PATIENT
  Age: 68 Year
  Sex: Male
  Weight: 70 kg

DRUGS (1)
  1. ROPINIROLE HCL [Suspect]
     Indication: PARKINSON'S DISEASE
     Dosage: 1MG THREE TIMES PER DAY
     Route: 048
     Dates: start: 20050201, end: 20050301

REACTIONS (1)
  - SUDDEN ONSET OF SLEEP [None]
